FAERS Safety Report 5971184-9 (Version None)
Quarter: 2008Q4

REPORT INFORMATION
  Report Type: 
  Country: None (occurrence: None)
  Receive Date: 20081128
  Receipt Date: 20081121
  Transmission Date: 20090506
  Serious: Yes (Other)
  Sender: FDA-Public Use
  Company Number: IE-ABBOTT-08P-229-0482003-00

PATIENT
  Sex: Female

DRUGS (3)
  1. HUMIRA [Suspect]
     Indication: ARTHRITIS
     Dates: start: 20070701
  2. HUMIRA [Suspect]
  3. LEVOTHYROXINE SODIUM [Concomitant]
     Indication: THYROID DISORDER
     Route: 048

REACTIONS (5)
  - HYSTERECTOMY [None]
  - IMPAIRED HEALING [None]
  - RHINITIS [None]
  - TOOTH INFECTION [None]
  - WEIGHT DECREASED [None]
